FAERS Safety Report 21266040 (Version 1)
Quarter: 2022Q3

REPORT INFORMATION
  Report Type: Spontaneous
  Country: TW (occurrence: TW)
  Receive Date: 20220829
  Receipt Date: 20220829
  Transmission Date: 20221027
  Serious: Yes (Other)
  Sender: FDA-Public Use
  Company Number: TW-PFIZER INC-PV202200049211

PATIENT
  Age: 51 Year
  Sex: Female

DRUGS (2)
  1. TALAZOPARIB [Suspect]
     Active Substance: TALAZOPARIB
     Dosage: 4 #, QD
     Dates: start: 202006
  2. TALAZOPARIB [Suspect]
     Active Substance: TALAZOPARIB
     Dosage: 3 #, QD
     Dates: start: 202011

REACTIONS (4)
  - Anaemia [Unknown]
  - Haematotoxicity [Unknown]
  - Malaise [Unknown]
  - Dyspnoea exertional [Unknown]

NARRATIVE: CASE EVENT DATE: 20201101
